FAERS Safety Report 13305427 (Version 2)
Quarter: 2017Q2

REPORT INFORMATION
  Report Type: Spontaneous
  Country: US (occurrence: US)
  Receive Date: 20170308
  Receipt Date: 20170425
  Transmission Date: 20170830
  Serious: Yes (Death, Hospitalization)
  Sender: FDA-Public Use
  Company Number: US-CELGENEUS-USA-2017029588

PATIENT
  Age: 62 Year
  Sex: Male

DRUGS (4)
  1. SORIATANE [Concomitant]
     Active Substance: ACITRETIN
     Indication: PRODUCT USED FOR UNKNOWN INDICATION
     Dosage: 10 MILLIGRAM
     Route: 065
     Dates: start: 20160407
  2. SORIATANE [Concomitant]
     Active Substance: ACITRETIN
     Dosage: 25 MILLIGRAM
     Route: 065
     Dates: start: 20160512
  3. OTEZLA [Suspect]
     Active Substance: APREMILAST
     Indication: PSORIASIS
     Route: 048
     Dates: start: 201606, end: 201611
  4. SORIATANE [Concomitant]
     Active Substance: ACITRETIN
     Dosage: 10 MILLIGRAM
     Route: 065
     Dates: start: 20160712, end: 20160917

REACTIONS (4)
  - Hepatic encephalopathy [Unknown]
  - Bacterial infection [Unknown]
  - Renal failure [Fatal]
  - Hepatic failure [Fatal]

NARRATIVE: CASE EVENT DATE: 20161104
